FAERS Safety Report 8998559 (Version 4)
Quarter: 2013Q2

REPORT INFORMATION
  Report Type: Spontaneous
  Country: FR (occurrence: FR)
  Receive Date: 20130103
  Receipt Date: 20130529
  Transmission Date: 20140414
  Serious: Yes (Other)
  Sender: FDA-Public Use
  Company Number: FR-ROCHE-1057903

PATIENT
  Sex: Female

DRUGS (3)
  1. XOLAIR [Suspect]
     Indication: BRONCHOPULMONARY ASPERGILLOSIS ALLERGIC
     Route: 058
     Dates: start: 201109, end: 201203
  2. SERETIDE [Concomitant]
     Indication: ASTHMA
  3. CORTANCYL [Concomitant]
     Indication: BRONCHOPULMONARY ASPERGILLOSIS ALLERGIC
     Dosage: 10-40 MG
     Route: 065

REACTIONS (2)
  - Bronchopulmonary aspergillosis allergic [Unknown]
  - Exposure during pregnancy [Unknown]
